FAERS Safety Report 20318214 (Version 1)
Quarter: 2022Q1

REPORT INFORMATION
  Report Type: Spontaneous
  Country: US (occurrence: US)
  Receive Date: 20220110
  Receipt Date: 20220110
  Transmission Date: 20220423
  Serious: Yes (Life-Threatening, Hospitalization, Other)
  Sender: FDA-Public Use
  Company Number: US-SA-SAC20220107000129

PATIENT
  Age: 65 Year
  Sex: Male

DRUGS (5)
  1. PLAVIX [Suspect]
     Active Substance: CLOPIDOGREL BISULFATE
  2. ASPIRIN [Suspect]
     Active Substance: ASPIRIN
  3. CLOPIDOGREL [Suspect]
     Active Substance: CLOPIDOGREL BISULFATE
  4. APIXABAN [Suspect]
     Active Substance: APIXABAN
  5. CEPHRADINE [Suspect]
     Active Substance: CEPHRADINE
     Dosage: 23MG

REACTIONS (10)
  - Asthenia [Unknown]
  - Coordination abnormal [Unknown]
  - Infarction [Unknown]
  - Haemophilia [Unknown]
  - Arrhythmia [Unknown]
  - Carotid artery disease [Unknown]
  - Stenosis [Unknown]
  - Cerebrovascular accident [Unknown]
  - Dysarthria [Unknown]
  - Ulcer [Unknown]
